FAERS Safety Report 4561463-4 (Version None)
Quarter: 2005Q1

REPORT INFORMATION
  Report Type: 
  Country: None (occurrence: None)
  Receive Date: 20050121
  Receipt Date: 20050105
  Transmission Date: 20050727
  Serious: Yes (Other)
  Sender: FDA-Public Use
  Company Number: USA050187560

PATIENT
  Age: 38 Year
  Sex: Female
  Weight: 53 kg

DRUGS (2)
  1. STRATTERA [Suspect]
     Dosage: 100 MG DAY
     Dates: start: 20030101
  2. BENADRYL [Concomitant]

REACTIONS (4)
  - CARDIAC MURMUR [None]
  - CHEST PAIN [None]
  - MITRAL VALVE INCOMPETENCE [None]
  - TRICUSPID VALVE INCOMPETENCE [None]
